FAERS Safety Report 19481405 (Version 3)
Quarter: 2021Q3

REPORT INFORMATION
  Report Type: Spontaneous
  Country: US (occurrence: US)
  Receive Date: 20210701
  Receipt Date: 20210930
  Transmission Date: 20211014
  Serious: No
  Sender: FDA-Public Use
  Company Number: US-CELGENEUS-USA-20210607663

PATIENT
  Sex: Female

DRUGS (6)
  1. REVLIMID [Suspect]
     Active Substance: LENALIDOMIDE
     Indication: FOLLICULAR LYMPHOMA
     Dosage: 20 MILLIGRAM
     Route: 048
     Dates: start: 202101
  2. GABAPENTIN. [Concomitant]
     Active Substance: GABAPENTIN
     Indication: PRODUCT USED FOR UNKNOWN INDICATION
     Route: 065
  3. POTASSIUM CHLORIDE MICRO [Concomitant]
     Indication: PRODUCT USED FOR UNKNOWN INDICATION
     Route: 065
  4. REVLIMID [Suspect]
     Active Substance: LENALIDOMIDE
     Indication: OFF LABEL USE
     Dosage: 20 MILLIGRAM
     Route: 048
     Dates: start: 20210311
  5. ATORVASTATIN [Concomitant]
     Active Substance: ATORVASTATIN
     Indication: PRODUCT USED FOR UNKNOWN INDICATION
     Route: 065
  6. CITALOPRAM [Concomitant]
     Active Substance: CITALOPRAM HYDROBROMIDE
     Indication: PRODUCT USED FOR UNKNOWN INDICATION
     Route: 065

REACTIONS (12)
  - Back pain [Unknown]
  - Peripheral swelling [Unknown]
  - Arthralgia [Not Recovered/Not Resolved]
  - Dry skin [Unknown]
  - Night sweats [Unknown]
  - Myalgia [Unknown]
  - Fatigue [Not Recovered/Not Resolved]
  - Epistaxis [Not Recovered/Not Resolved]
  - Insomnia [Not Recovered/Not Resolved]
  - Oral pain [Unknown]
  - Dizziness [Not Recovered/Not Resolved]
  - Fluid retention [Unknown]

NARRATIVE: CASE EVENT DATE: 2021
